FAERS Safety Report 6094505-8 (Version None)
Quarter: 2009Q1

REPORT INFORMATION
  Report Type: 
  Country: None (occurrence: None)
  Receive Date: 20090226
  Receipt Date: 20090218
  Transmission Date: 20090719
  Serious: Yes (Hospitalization)
  Sender: FDA-Public Use
  Company Number: JP-ABBOTT-08P-087-0491112-00

PATIENT
  Sex: Male

DRUGS (11)
  1. HUMIRA [Suspect]
     Indication: RHEUMATOID ARTHRITIS
     Route: 058
     Dates: start: 20080807, end: 20081113
  2. HUMIRA [Suspect]
     Route: 058
     Dates: start: 20081218
  3. EPALRESTAT [Concomitant]
     Indication: DIABETES MELLITUS
     Dosage: 150 MG DAILY
     Route: 048
     Dates: start: 20081203
  4. INSULIN LISPRO [Concomitant]
     Indication: DIABETES MELLITUS
     Dosage: 32 IU DAILY
     Route: 058
     Dates: start: 20080903
  5. CELECOXIB [Concomitant]
     Indication: RHEUMATOID ARTHRITIS
     Dosage: 200 MG DAILY
     Route: 048
     Dates: start: 20071115
  6. ECABET SODIUM HYDRATE [Concomitant]
     Indication: PROPHYLAXIS AGAINST GASTROINTESTINAL ULCER
     Dosage: 1.5 G DAILY
     Route: 048
     Dates: start: 20071115
  7. DICLOFENAC SODIUM [Concomitant]
     Indication: RHEUMATOID ARTHRITIS
     Dosage: 75 MG DAILY
     Route: 054
     Dates: start: 19981021
  8. ALENDRONATE SODIUM [Concomitant]
     Indication: OSTEOPOROSIS
     Dosage: 35 MG PER WEEK
     Route: 048
     Dates: start: 20070726
  9. METHOTREXATE [Concomitant]
     Indication: RHEUMATOID ARTHRITIS
     Dates: end: 20081115
  10. METHOTREXATE [Concomitant]
     Dates: start: 20081218
  11. BETAMETHASONE [Concomitant]
     Indication: RHEUMATOID ARTHRITIS
     Dosage: 0.5 MG DAILY
     Route: 054

REACTIONS (3)
  - CHEST PAIN [None]
  - HERPES ZOSTER [None]
  - HYPOPHAGIA [None]
